FAERS Safety Report 14746880 (Version 1)
Quarter: 2018Q2

REPORT INFORMATION
  Report Type: Spontaneous
  Country: US (occurrence: US)
  Receive Date: 20180405
  Receipt Date: 20180405
  Transmission Date: 20180711
  Serious: Yes (Disabling, Other)
  Sender: FDA-Public Use
  Company Number: None

PATIENT
  Age: 69 Year
  Sex: Male
  Weight: 97.65 kg

DRUGS (1)
  1. ROSUVASTATIN CALCIUM. [Suspect]
     Active Substance: ROSUVASTATIN CALCIUM
     Indication: BLOOD CHOLESTEROL INCREASED
     Dosage: ?          QUANTITY:90 TABLET(S);?
     Route: 048
     Dates: start: 20180312, end: 20180317

REACTIONS (7)
  - Constipation [None]
  - Gastrointestinal pain [None]
  - Vomiting projectile [None]
  - Malaise [None]
  - Headache [None]
  - Abdominal pain upper [None]
  - Abdominal distension [None]

NARRATIVE: CASE EVENT DATE: 20180317
